FAERS Safety Report 10404708 (Version 1)
Quarter: 2014Q3

REPORT INFORMATION
  Report Type: Spontaneous
  Country: US (occurrence: US)
  Receive Date: 20140824
  Receipt Date: 20140824
  Transmission Date: 20150326
  Serious: No
  Sender: FDA-Public Use
  Company Number: US-009507513-1408USA005312

PATIENT

DRUGS (1)
  1. DULERA [Suspect]
     Active Substance: FORMOTEROL FUMARATE DIHYDRATE\MOMETASONE FUROATE
     Dosage: ONE TO TWO PUFFS ONCE DAILY

REACTIONS (4)
  - Drug administered to patient of inappropriate age [Unknown]
  - No adverse event [Unknown]
  - Off label use [Unknown]
  - Product quality issue [Unknown]
